FAERS Safety Report 11892144 (Version 5)
Quarter: 2016Q1

REPORT INFORMATION
  Report Type: Spontaneous
  Country: US (occurrence: US)
  Receive Date: 20160106
  Receipt Date: 20160212
  Transmission Date: 20160526
  Serious: Yes (Hospitalization, Other)
  Sender: FDA-Public Use
  Company Number: US-SHIRE-US201516880

PATIENT
  Age: 79 Year
  Sex: Male
  Weight: 82.99 kg

DRUGS (1)
  1. GATTEX [Suspect]
     Active Substance: TEDUGLUTIDE\WATER
     Indication: MALABSORPTION
     Dosage: 0.19 ML, 1X/DAY:QD
     Route: 058
     Dates: start: 20151207

REACTIONS (4)
  - Fluid retention [Not Recovered/Not Resolved]
  - Weight increased [Unknown]
  - Blister infected [Not Recovered/Not Resolved]
  - Peripheral swelling [Not Recovered/Not Resolved]

NARRATIVE: CASE EVENT DATE: 201512
